FAERS Safety Report 20040478 (Version 1)
Quarter: 2021Q4

REPORT INFORMATION
  Report Type: Spontaneous
  Country: US (occurrence: None)
  Receive Date: 20211105
  Receipt Date: 20211105
  Transmission Date: 20220303
  Serious: No
  Sender: FDA-Public Use
  Company Number: None

PATIENT
  Age: 64 Year
  Sex: Female
  Weight: 90 kg

DRUGS (12)
  1. STELARA [Suspect]
     Active Substance: USTEKINUMAB
     Indication: Type 2 diabetes mellitus
     Dosage: OTHER QUANTITY : 1 TABLET(S);?
     Route: 048
     Dates: start: 20210925, end: 20210929
  2. METOPROLOL [Concomitant]
     Active Substance: METOPROLOL
  3. GLYBURIDE [Concomitant]
     Active Substance: GLYBURIDE
  4. LOSARTAN POTASSIUM [Concomitant]
     Active Substance: LOSARTAN POTASSIUM
  5. ROSUVASTATIN [Concomitant]
     Active Substance: ROSUVASTATIN
  6. HYDROCHLOROTHIAZIDE [Concomitant]
     Active Substance: HYDROCHLOROTHIAZIDE
  7. METOPROLOL [Concomitant]
     Active Substance: METOPROLOL
  8. ASPIRIN [Concomitant]
     Active Substance: ASPIRIN
  9. VITAMIN D3 [Concomitant]
     Active Substance: CHOLECALCIFEROL
  10. NAPROXEN [Concomitant]
     Active Substance: NAPROXEN
  11. IBUPROFEN [Concomitant]
     Active Substance: IBUPROFEN
  12. TYLENOL [Concomitant]
     Active Substance: ACETAMINOPHEN

REACTIONS (7)
  - Vulvovaginal dryness [None]
  - Vulvovaginal swelling [None]
  - Vulvovaginal pain [None]
  - Dysuria [None]
  - Dysuria [None]
  - Emotional distress [None]
  - Product complaint [None]

NARRATIVE: CASE EVENT DATE: 20210925
